FAERS Safety Report 4666226-7 (Version None)
Quarter: 2005Q2

REPORT INFORMATION
  Report Type: 
  Country: None (occurrence: None)
  Receive Date: 20050517
  Receipt Date: 20050517
  Transmission Date: 20051028
  Serious: Yes (Other)
  Sender: FDA-Public Use
  Company Number: None

PATIENT
  Sex: Male
  Weight: 90.7194 kg

DRUGS (1)
  1. GENERIC DURAGESIC PATCH [Suspect]
     Indication: BACK PAIN
     Dosage: 125 MG Q 72 HOURS

REACTIONS (1)
  - DRUG INEFFECTIVE [None]
